FAERS Safety Report 10080741 (Version 1)
Quarter: 2014Q2

REPORT INFORMATION
  Report Type: Spontaneous
  Country: DE (occurrence: DE)
  Receive Date: 20140416
  Receipt Date: 20140416
  Transmission Date: 20141212
  Serious: Yes (Death)
  Sender: FDA-Public Use
  Company Number: DE-JNJFOC-20140408825

PATIENT
  Age: 93 Year
  Sex: Female
  Weight: 52 kg

DRUGS (5)
  1. XARELTO [Suspect]
     Indication: CEREBROVASCULAR ACCIDENT
     Route: 048
  2. XARELTO [Suspect]
     Indication: ARRHYTHMIA
     Route: 048
  3. PANTOPRAZOLE [Concomitant]
  4. METOHEXAL [Concomitant]
     Route: 065
  5. RAMILICH [Concomitant]
     Route: 065

REACTIONS (2)
  - Renal failure acute [Fatal]
  - Muscle spasms [Unknown]
